FAERS Safety Report 9816491 (Version 2)
Quarter: 2014Q1

REPORT INFORMATION
  Report Type: Spontaneous
  Country: US (occurrence: US)
  Receive Date: 20140114
  Receipt Date: 20140307
  Transmission Date: 20141002
  Serious: Yes (Other)
  Sender: FDA-Public Use
  Company Number: US-SA-2014SA004027

PATIENT
  Age: 59 Year
  Sex: Female
  Weight: 59 kg

DRUGS (3)
  1. ELOXATIN [Suspect]
     Indication: COLON CANCER METASTATIC
     Route: 042
     Dates: start: 20140107
  2. 5-FU [Suspect]
     Route: 065
  3. LEUCOVORIN [Suspect]
     Route: 065

REACTIONS (2)
  - Tunnel vision [Not Recovered/Not Resolved]
  - Eye pain [Not Recovered/Not Resolved]
